FAERS Safety Report 5360019-3 (Version None)
Quarter: 2007Q2

REPORT INFORMATION
  Report Type: 
  Country: None (occurrence: None)
  Receive Date: 20070618
  Receipt Date: 20070607
  Transmission Date: 20071010
  Serious: Yes (Hospitalization)
  Sender: FDA-Public Use
  Company Number: US-JNJFOC-20070601960

PATIENT
  Weight: 1.87 kg

DRUGS (12)
  1. INFLIXIMAB [Suspect]
     Route: 015
  2. INFLIXIMAB [Suspect]
     Route: 015
  3. INFLIXIMAB [Suspect]
     Route: 015
  4. INFLIXIMAB [Suspect]
     Route: 015
  5. INFLIXIMAB [Suspect]
     Route: 015
  6. INFLIXIMAB [Suspect]
     Route: 015
  7. INFLIXIMAB [Suspect]
     Route: 015
  8. INFLIXIMAB [Suspect]
     Route: 015
  9. INFLIXIMAB [Suspect]
     Indication: DRUG EXPOSURE DURING PREGNANCY
     Route: 015
  10. AZATHIOPRINE [Concomitant]
  11. MESALAMINE [Concomitant]
  12. PREDNISONE TAB [Concomitant]

REACTIONS (1)
  - PREMATURE BABY [None]
